FAERS Safety Report 5062940-2 (Version None)
Quarter: 2006Q3

REPORT INFORMATION
  Report Type: 
  Country: None (occurrence: None)
  Receive Date: 20060724
  Receipt Date: 20060719
  Transmission Date: 20061208
  Serious: Yes (Disabling)
  Sender: FDA-Public Use
  Company Number: OSCN-GE-0508S-0168

PATIENT
  Age: 47 Year
  Sex: Male
  Weight: 78 kg

DRUGS (1)
  1. OMNISCAN [Suspect]
     Indication: PERIPHERAL ARTERIAL OCCLUSIVE DISEASE
     Dosage: 40 ML, SINGLE DOSE, I.V.
     Route: 042
     Dates: start: 20050607, end: 20050607

REACTIONS (10)
  - ERYTHEMA [None]
  - JOINT STIFFNESS [None]
  - MYALGIA [None]
  - OEDEMA PERIPHERAL [None]
  - PAIN OF SKIN [None]
  - RENAL TRANSPLANT [None]
  - SKIN BURNING SENSATION [None]
  - SKIN DISORDER [None]
  - SKIN INDURATION [None]
  - SYSTEMIC SCLEROSIS [None]
